FAERS Safety Report 15840550 (Version 2)
Quarter: 2019Q1

REPORT INFORMATION
  Report Type: Spontaneous
  Country: IL (occurrence: IL)
  Receive Date: 20190118
  Receipt Date: 20190326
  Transmission Date: 20190417
  Serious: Yes (Hospitalization)
  Sender: FDA-Public Use
  Company Number: IL-ROCHE-2247175

PATIENT
  Age: 34 Year
  Sex: Female

DRUGS (1)
  1. COTELLIC [Suspect]
     Active Substance: COBIMETINIB
     Indication: OVARIAN CANCER METASTATIC
     Route: 065
     Dates: start: 201812

REACTIONS (1)
  - Mental disorder [Not Recovered/Not Resolved]
